FAERS Safety Report 8767193 (Version 2)
Quarter: 2014Q4

REPORT INFORMATION
  Report Type: Spontaneous
  Country: US (occurrence: US)
  Receive Date: 20120904
  Receipt Date: 20141031
  Transmission Date: 20150529
  Serious: Yes (Hospitalization, Other)
  Sender: FDA-Public Use
  Company Number: US-GLAXOSMITHKLINE-A0966826A

PATIENT
  Sex: Male

DRUGS (1)
  1. AVANDIA [Suspect]
     Active Substance: ROSIGLITAZONE MALEATE
     Indication: DIABETES MELLITUS
     Dosage: 4 MG, BID
     Route: 048
     Dates: start: 20030215, end: 20110810

REACTIONS (5)
  - Stent placement [Unknown]
  - Coronary artery disease [Unknown]
  - Myocardial infarction [Not Recovered/Not Resolved]
  - Coronary artery bypass [Unknown]
  - Cardiomegaly [Unknown]
